FAERS Safety Report 9464324 (Version 2)
Quarter: 2013Q3

REPORT INFORMATION
  Report Type: Report from Study
  Country: BR (occurrence: BR)
  Receive Date: 20130819
  Receipt Date: 20130916
  Transmission Date: 20140515
  Serious: Yes (Other)
  Sender: FDA-Public Use
  Company Number: PHHY2013BR089294

PATIENT
  Age: 68 Year
  Sex: Male
  Weight: 76 kg

DRUGS (4)
  1. DIOVAN [Suspect]
     Indication: HYPERTENSION
     Dosage: UNK UKN, BID
  2. OPTI FREE [Concomitant]
     Dosage: UNK UKN, UNK
     Dates: end: 201301
  3. ATORVASTATIN [Concomitant]
     Indication: BLOOD CHOLESTEROL INCREASED
     Dosage: 2 DF (20MG), DAILY
     Route: 048
  4. AAS [Concomitant]
     Indication: ANTICOAGULANT THERAPY
     Dosage: 2 DF (100MG), DAILY
     Route: 048

REACTIONS (10)
  - Eye infection [Recovered/Resolved]
  - Intraocular pressure increased [Recovering/Resolving]
  - Anaemia [Recovering/Resolving]
  - Gout [Recovered/Resolved]
  - Arthralgia [Recovered/Resolved]
  - Angina pectoris [Recovering/Resolving]
  - Arterial occlusive disease [Recovering/Resolving]
  - Arrhythmia [Recovering/Resolving]
  - Renal failure [Unknown]
  - Blood phosphorus increased [Recovering/Resolving]
